FAERS Safety Report 24611554 (Version 1)
Quarter: 2024Q4

REPORT INFORMATION
  Report Type: Spontaneous
  Country: US (occurrence: US)
  Receive Date: 20241113
  Receipt Date: 20241113
  Transmission Date: 20250114
  Serious: Yes (Other)
  Sender: PIRAMAL
  Company Number: US-PCCINC-2024-PPL-000834

PATIENT

DRUGS (2)
  1. MORPHINE SULFATE [Suspect]
     Active Substance: MORPHINE SULFATE
     Indication: Pain
     Dosage: 20MG/ML OF MORPHINE WITH A DAILY DOSE OF 10MG AND 40MG/ML OF BUPIVACAINE
  2. BUPIVACAINE [Suspect]
     Active Substance: BUPIVACAINE
     Indication: Pain
     Dosage: 20MG/ML OF MORPHINE WITH A DAILY DOSE OF 10MG AND 40MG/ML OF BUPIVACAINE

REACTIONS (1)
  - Paralysis [Unknown]
